FAERS Safety Report 7935364-5 (Version None)
Quarter: 2011Q4

REPORT INFORMATION
  Report Type: 
  Country: None (occurrence: None)
  Receive Date: 20111122
  Receipt Date: 20111114
  Transmission Date: 20120403
  Serious: Yes (Hospitalization)
  Sender: FDA-Public Use
  Company Number: US-RB-034285-11

PATIENT
  Age: 55 Year
  Sex: Female

DRUGS (2)
  1. SUBOXONE [Suspect]
     Indication: PRODUCT USED FOR UNKNOWN INDICATION
     Dosage: UNKNOWN DOSE
     Route: 065
  2. SUBOXONE [Suspect]
     Indication: PRODUCT USED FOR UNKNOWN INDICATION
     Dosage: UNKNOWN DOSE
     Route: 065

REACTIONS (9)
  - INSOMNIA [None]
  - CONSTIPATION [None]
  - FOOD CRAVING [None]
  - SUICIDAL IDEATION [None]
  - NAUSEA [None]
  - ASTHENIA [None]
  - NICOTINE DEPENDENCE [None]
  - CRYING [None]
  - DEPRESSION [None]
